FAERS Safety Report 10070697 (Version 1)
Quarter: 2014Q2

REPORT INFORMATION
  Report Type: Spontaneous
  Country: US (occurrence: None)
  Receive Date: 20140408
  Receipt Date: 20140408
  Transmission Date: 20141212
  Serious: Yes (Other)
  Sender: FDA-Public Use
  Company Number: 201403132

PATIENT
  Age: 65 Year
  Sex: Male

DRUGS (1)
  1. TESTIM (TESTOSTERONE) [Suspect]
     Indication: BLOOD TESTOSTERONE DECREASED
     Dates: start: 200712, end: 200808

REACTIONS (5)
  - Pulmonary embolism [None]
  - Marital problem [None]
  - Pain [None]
  - Fear [None]
  - Economic problem [None]
